FAERS Safety Report 10159186 (Version 1)
Quarter: 2014Q2

REPORT INFORMATION
  Report Type: Spontaneous
  Country: GB (occurrence: GB)
  Receive Date: 20140508
  Receipt Date: 20140508
  Transmission Date: 20141212
  Serious: Yes (Other)
  Sender: FDA-Public Use
  Company Number: GB-ACCORD-023497

PATIENT
  Age: 35 Year
  Sex: Female

DRUGS (1)
  1. AMLODIPINE [Suspect]
     Dosage: ACCIDENTAL EXPOSURE WHILE PREPARING EMULSION OF TABLET FOR A CHILD.
     Route: 061

REACTIONS (6)
  - Mydriasis [Recovered/Resolved]
  - Vision blurred [Recovered/Resolved]
  - Accommodation disorder [Recovered/Resolved]
  - Visual acuity reduced [Recovered/Resolved]
  - Pupil fixed [Recovered/Resolved]
  - Accidental exposure to product [Unknown]
